FAERS Safety Report 12922993 (Version 1)
Quarter: 2016Q4

REPORT INFORMATION
  Report Type: Spontaneous
  Country: US (occurrence: US)
  Receive Date: 20161109
  Receipt Date: 20161109
  Transmission Date: 20170207
  Serious: Yes (Hospitalization)
  Sender: FDA-Public Use
  Company Number: US-GLAXOSMITHKLINE-US2016164637

PATIENT
  Sex: Female

DRUGS (1)
  1. VENTOLIN HFA [Suspect]
     Active Substance: ALBUTEROL SULFATE
     Indication: PRODUCT USED FOR UNKNOWN INDICATION
     Dosage: 2 PUFF(S), UNK

REACTIONS (6)
  - Breast mass [Unknown]
  - Product cleaning inadequate [Unknown]
  - Hernia [Recovered/Resolved]
  - Gastric neoplasm [Recovered/Resolved]
  - Device use error [Unknown]
  - Incorrect product storage [Unknown]
